FAERS Safety Report 11732727 (Version 1)
Quarter: 2015Q4

REPORT INFORMATION
  Report Type: Spontaneous
  Country: US (occurrence: US)
  Receive Date: 20151110
  Receipt Date: 20151110
  Transmission Date: 20160304
  Serious: No
  Sender: FDA-Public Use
  Company Number: US-ELI_LILLY_AND_COMPANY-US201203000290

PATIENT
  Sex: Female

DRUGS (1)
  1. FORTEO [Suspect]
     Active Substance: TERIPARATIDE
     Indication: OSTEOPOROSIS
     Dosage: UNK, UNKNOWN
     Route: 065
     Dates: start: 201202

REACTIONS (12)
  - Paraesthesia [Not Recovered/Not Resolved]
  - Alopecia [Unknown]
  - Injection site haemorrhage [Unknown]
  - Back pain [Unknown]
  - Blood calcium decreased [Unknown]
  - Hypoaesthesia [Unknown]
  - Injection site bruising [Unknown]
  - Arthralgia [Unknown]
  - Vitamin D decreased [Unknown]
  - Limb discomfort [Unknown]
  - Headache [Unknown]
  - Paraesthesia [Unknown]
